FAERS Safety Report 9622740 (Version 2)
Quarter: 2014Q1

REPORT INFORMATION
  Report Type: Report from Study
  Country: US (occurrence: US)
  Receive Date: 20131015
  Receipt Date: 20140107
  Transmission Date: 20141002
  Serious: Yes (Death, Life-Threatening, Hospitalization, Other)
  Sender: FDA-Public Use
  Company Number: PHEH2013US021337

PATIENT
  Age: 84 Year
  Sex: Male

DRUGS (6)
  1. GLEEVEC [Suspect]
     Indication: SOFT TISSUE NEOPLASM
     Dosage: 400 MG, DAILY
     Route: 048
     Dates: start: 20130924
  2. GLEEVEC [Suspect]
     Dosage: 400 MG, DAILY
     Route: 048
     Dates: start: 20130930, end: 20131007
  3. CHEMOTHERAPEUTICS [Concomitant]
  4. LIPITOR [Concomitant]
     Dosage: UNK UKN, UNK
  5. OXYBUTYNIN [Concomitant]
     Dosage: UNK UKN, UNK
  6. FINASTERIDE [Concomitant]
     Dosage: UNK UKN, UNK

REACTIONS (17)
  - Cerebrovascular accident [Fatal]
  - Aphasia [Fatal]
  - Dysphagia [Fatal]
  - Dyspnoea [Fatal]
  - Dysarthria [Fatal]
  - Tumour haemorrhage [Not Recovered/Not Resolved]
  - Oropharyngeal pain [Unknown]
  - Throat irritation [Not Recovered/Not Resolved]
  - Dysgeusia [Unknown]
  - Vomiting [Not Recovered/Not Resolved]
  - Dyspepsia [Not Recovered/Not Resolved]
  - Nausea [Not Recovered/Not Resolved]
  - Oedema peripheral [Not Recovered/Not Resolved]
  - Decreased appetite [Not Recovered/Not Resolved]
  - Flatulence [Not Recovered/Not Resolved]
  - Cough [Not Recovered/Not Resolved]
  - Platelet count decreased [Not Recovered/Not Resolved]
